FAERS Safety Report 5574422-X (Version None)
Quarter: 2007Q4

REPORT INFORMATION
  Report Type: 
  Country: None (occurrence: None)
  Receive Date: 20071221
  Receipt Date: 20071211
  Transmission Date: 20080405
  Serious: Yes (Hospitalization)
  Sender: FDA-Public Use
  Company Number: A-US2007-16062

PATIENT
  Age: 64 Year
  Sex: Female
  Weight: 77.6 kg

DRUGS (16)
  1. TRACLEER [Suspect]
     Indication: PULMONARY HYPERTENSION
     Dosage: 125 MG, BID; 62.5 MG, BID, ORAL
     Route: 048
     Dates: start: 20070521
  2. PREDNISONE [Concomitant]
  3. NOVOLOG [Concomitant]
  4. LANTUS [Concomitant]
  5. SYNTHROID [Concomitant]
  6. CLONIDINE [Concomitant]
  7. CLONAZEPAM [Concomitant]
  8. NEXIUM [Concomitant]
  9. LASIX [Concomitant]
  10. K-DUR 10 [Concomitant]
  11. ZAROXOLYN [Concomitant]
  12. AMBIEN [Concomitant]
  13. DIOVAN [Concomitant]
  14. XOPENEX [Concomitant]
  15. MACROGOL (MACROGOL) [Concomitant]
  16. SPIRONOLACTONE [Concomitant]

REACTIONS (11)
  - ABDOMINAL PAIN UPPER [None]
  - BLOOD POTASSIUM DECREASED [None]
  - COUGH [None]
  - DEHYDRATION [None]
  - DIARRHOEA [None]
  - DYSPNOEA EXERTIONAL [None]
  - FAECALOMA [None]
  - ILEUS [None]
  - INSOMNIA [None]
  - LIVER FUNCTION TEST ABNORMAL [None]
  - PALPITATIONS [None]
